FAERS Safety Report 7397636-5 (Version None)
Quarter: 2011Q2

REPORT INFORMATION
  Report Type: 
  Country: None (occurrence: None)
  Receive Date: 20110406
  Receipt Date: 20110329
  Transmission Date: 20111010
  Serious: Yes (Other)
  Sender: FDA-Public Use
  Company Number: US-PFIZER INC-2005103648

PATIENT
  Sex: Male
  Weight: 143 kg

DRUGS (12)
  1. PROCARDIA XL [Suspect]
     Indication: POSTOPERATIVE CARE
  2. PROGRAF [Suspect]
     Indication: RENAL TRANSPLANT
     Dosage: BID
     Route: 065
     Dates: start: 20030917
  3. HYDROCORTISONE [Concomitant]
     Dosage: TWICE DAILY
     Route: 048
  4. NIFEDIPINE [Suspect]
     Dosage: UNK
  5. CELLCEPT [Concomitant]
     Dosage: TWICE DAILY
     Route: 048
  6. TRIAMCINOLONE [Concomitant]
     Route: 065
  7. PROCARDIA XL [Suspect]
     Indication: HYPERTENSION
     Dosage: BID
     Route: 048
     Dates: start: 19970101
  8. ZOLOFT [Concomitant]
     Route: 048
  9. PREDNISONE [Concomitant]
     Dosage: DAILY
     Route: 048
  10. ATACAND [Concomitant]
     Route: 048
  11. BACTROBAN [Concomitant]
     Route: 065
  12. XANAX [Concomitant]
     Route: 048

REACTIONS (7)
  - TYPE 2 DIABETES MELLITUS [None]
  - PRODUCT SUBSTITUTION ISSUE [None]
  - GLUCOSE TOLERANCE IMPAIRED [None]
  - BLOOD GLUCOSE INCREASED [None]
  - DIABETES MELLITUS [None]
  - RENAL FAILURE [None]
  - BLOOD PRESSURE INADEQUATELY CONTROLLED [None]
